FAERS Safety Report 8086704-0 (Version None)
Quarter: 2012Q1

REPORT INFORMATION
  Report Type: 
  Country: None (occurrence: None)
  Receive Date: 20120128
  Receipt Date: 20110419
  Transmission Date: 20120608
  Serious: No
  Sender: FDA-Public Use
  Company Number: US-ABBOTT-11P-163-0720868-00

PATIENT
  Sex: Female
  Weight: 59.02 kg

DRUGS (6)
  1. EFFEXOR XR [Concomitant]
     Indication: FIBROMYALGIA
  2. HUMIRA [Suspect]
     Dates: end: 20110201
  3. SYNTHROID [Concomitant]
     Indication: HYPOTHYROIDISM
  4. HUMIRA [Suspect]
     Indication: CROHN'S DISEASE
     Dates: start: 20040101
  5. CIMZIA [Suspect]
     Indication: CROHN'S DISEASE
  6. HUMIRA [Suspect]
     Dates: start: 20110301

REACTIONS (5)
  - THROAT LESION [None]
  - CROHN'S DISEASE [None]
  - STOMATITIS [None]
  - OEDEMA MOUTH [None]
  - EMOTIONAL DISTRESS [None]
